FAERS Safety Report 23061025 (Version 1)
Quarter: 2023Q4

REPORT INFORMATION
  Report Type: Report from Study
  Country: AR (occurrence: AR)
  Receive Date: 20231013
  Receipt Date: 20231013
  Transmission Date: 20240110
  Serious: Yes (Hospitalization)
  Sender: FDA-Public Use
  Company Number: AR-JNJFOC-20231011133

PATIENT
  Age: 45 Year
  Sex: Female
  Weight: 90.2 kg

DRUGS (3)
  1. DARATUMUMAB [Suspect]
     Active Substance: DARATUMUMAB
     Indication: Plasma cell myeloma
     Dosage: MOST RECENT DOSE ON 07/SEP/2023
     Route: 058
     Dates: start: 20230323
  2. POMALIDOMIDE [Suspect]
     Active Substance: POMALIDOMIDE
     Indication: Plasma cell myeloma
     Dosage: MOST RECENT DOSE ON 24-SEP-2023
     Route: 048
     Dates: start: 20230323
  3. DEXAMETHASONE [Suspect]
     Active Substance: DEXAMETHASONE
     Indication: Plasma cell myeloma
     Dosage: MOST RECENT DOSE ON 21-SEP-2023.
     Route: 048
     Dates: start: 20230323

REACTIONS (1)
  - Metapneumovirus pneumonia [Not Recovered/Not Resolved]

NARRATIVE: CASE EVENT DATE: 20230823
